FAERS Safety Report 5120965-2 (Version None)
Quarter: 2006Q4

REPORT INFORMATION
  Report Type: 
  Country: None (occurrence: None)
  Receive Date: 20061003
  Receipt Date: 20061003
  Transmission Date: 20070319
  Serious: Yes (Other)
  Sender: FDA-Public Use
  Company Number: None

PATIENT
  Age: 44 Year
  Sex: Male
  Weight: 49.8957 kg

DRUGS (2)
  1. LEVAQUIN [Suspect]
     Indication: INFECTION
     Dosage: ONE THAT DAY THAT DAY PO
     Route: 048
     Dates: start: 20060829, end: 20060829
  2. LEVAQUIN [Suspect]
     Indication: INFECTION
     Dosage: FOR SEVEN DAYS ONE DAILY PO
     Route: 048
     Dates: start: 20060830, end: 20060908

REACTIONS (3)
  - ARTHRALGIA [None]
  - MUSCULOSKELETAL STIFFNESS [None]
  - MYALGIA [None]
